FAERS Safety Report 16887049 (Version 3)
Quarter: 2019Q4

REPORT INFORMATION
  Report Type: Spontaneous
  Country: GB (occurrence: GB)
  Receive Date: 20191004
  Receipt Date: 20191101
  Transmission Date: 20200122
  Serious: Yes (Other)
  Sender: FDA-Public Use
  Company Number: GB-ASTRAZENECA-2019SF38927

PATIENT
  Sex: Female

DRUGS (4)
  1. NEXIUM [Suspect]
     Active Substance: ESOMEPRAZOLE MAGNESIUM
     Indication: GASTRIC POLYPS
     Dosage: 20.0MG UNKNOWN
     Route: 048
  2. NEXIUM CONTROL [Suspect]
     Active Substance: ESOMEPRAZOLE MAGNESIUM
     Route: 048
  3. NEXIUM CONTROL [Suspect]
     Active Substance: ESOMEPRAZOLE MAGNESIUM
     Dosage: GREEK PRODUCT
     Route: 048
  4. NEXIUM [Suspect]
     Active Substance: ESOMEPRAZOLE MAGNESIUM
     Indication: HIATUS HERNIA
     Dosage: 20.0MG UNKNOWN
     Route: 048

REACTIONS (5)
  - Off label use [Unknown]
  - Product use in unapproved indication [Unknown]
  - Autoimmune disorder [Unknown]
  - Histamine abnormal [Unknown]
  - Cardiac failure [Unknown]
